FAERS Safety Report 8783499 (Version 1)
Quarter: 2012Q4

REPORT INFORMATION
  Report Type: 
  Country: US (occurrence: US)
  Receive Date: 20120913
  Receipt Date: 20120913
  Transmission Date: 20130627
  Serious: Yes (Other)
  Sender: FDA-Public Use
  Company Number: US-VERTEX PHARMACEUTICAL INC.-AE-2012-008639

PATIENT

DRUGS (3)
  1. INCIVEK [Suspect]
     Indication: HEPATITIS C
     Route: 048
     Dates: start: 20111021, end: 20120106
  2. PEGINTRON REDIPEN [Concomitant]
     Indication: HEPATITIS C
     Dates: start: 20111021, end: 20120323
  3. RIBAVIRIN [Concomitant]
     Indication: HEPATITIS C
     Dates: start: 20111021, end: 20120323

REACTIONS (5)
  - Transfusion [Unknown]
  - Skin disorder [Unknown]
  - Abasia [Unknown]
  - Alopecia [Unknown]
  - Asthenia [Unknown]
